FAERS Safety Report 7983682-7 (Version None)
Quarter: 2011Q4

REPORT INFORMATION
  Report Type: 
  Country: None (occurrence: None)
  Receive Date: 20111215
  Receipt Date: 20111213
  Transmission Date: 20120403
  Serious: Yes (Hospitalization)
  Sender: FDA-Public Use
  Company Number: US-MERCK-1110USA00795

PATIENT
  Age: 78 Year
  Sex: Female

DRUGS (4)
  1. VITAMIN D (UNSPECIFIED) [Concomitant]
     Route: 048
     Dates: start: 20040101
  2. FOSAMAX [Suspect]
     Route: 048
     Dates: start: 20080201, end: 20090901
  3. FOSAMAX [Suspect]
     Indication: OSTEOPOROSIS
     Route: 048
     Dates: start: 20000301, end: 20080201
  4. CALCIUM (UNSPECIFIED) [Concomitant]
     Route: 065
     Dates: start: 20040101

REACTIONS (8)
  - DENTAL CARIES [None]
  - GAIT DISTURBANCE [None]
  - HYPERTENSION [None]
  - FEMORAL NECK FRACTURE [None]
  - BLOOD CHOLESTEROL INCREASED [None]
  - TOOTH DISORDER [None]
  - OEDEMA PERIPHERAL [None]
  - URINARY TRACT INFECTION [None]
